FAERS Safety Report 14013077 (Version 1)
Quarter: 2017Q3

REPORT INFORMATION
  Report Type: Spontaneous
  Country: US (occurrence: US)
  Receive Date: 20170926
  Receipt Date: 20170926
  Transmission Date: 20171128
  Serious: No
  Sender: FDA-Public Use
  Company Number: US-PFIZER INC-2017415258

PATIENT
  Age: 78 Year
  Sex: Female

DRUGS (2)
  1. LYRICA [Suspect]
     Active Substance: PREGABALIN
     Indication: FIBROMYALGIA
     Dosage: 75 MG, 3X/DAY(THREE PILLS A DAY)
     Route: 048
     Dates: start: 2015
  2. LYRICA [Suspect]
     Active Substance: PREGABALIN
     Indication: ARTHRITIS

REACTIONS (1)
  - Balance disorder [Recovering/Resolving]

NARRATIVE: CASE EVENT DATE: 2015
